FAERS Safety Report 9913422 (Version 2)
Quarter: 2014Q1

REPORT INFORMATION
  Report Type: Report from Study
  Country: RU (occurrence: RU)
  Receive Date: 20140220
  Receipt Date: 20140303
  Transmission Date: 20141002
  Serious: Yes (Other)
  Sender: FDA-Public Use
  Company Number: RU-ASTELLAS-2014EU001255

PATIENT
  Age: 40 Year
  Sex: Female

DRUGS (3)
  1. BLINDED SOLIFENACIN-MIRABEGRON [Suspect]
     Indication: HYPERTONIC BLADDER
     Dosage: 5.25 MG, UID/QD
     Route: 065
     Dates: start: 20131218, end: 20140203
  2. DROTAVERINE [Concomitant]
     Dosage: 80 MG, BID
     Route: 065
     Dates: start: 20140201
  3. ESSENTIALE                         /00022201/ [Concomitant]
     Dosage: 300 MG, TID
     Route: 065
     Dates: start: 20140201

REACTIONS (2)
  - Medication error [Recovering/Resolving]
  - Hepatic pain [Recovered/Resolved]
